FAERS Safety Report 8934512 (Version 1)
Quarter: 2012Q4

REPORT INFORMATION
  Report Type: 
  Country: US (occurrence: US)
  Receive Date: 20121129
  Receipt Date: 20121129
  Transmission Date: 20130627
  Serious: No
  Sender: FDA-Public Use
  Company Number: US-GLAXOSMITHKLINE-A0964358A

PATIENT
  Age: 40 Year
  Sex: Female

DRUGS (4)
  1. FLOVENT [Suspect]
     Indication: ASTHMA
     Dosage: 1PUFF Per day
     Route: 055
     Dates: start: 20120201
  2. FLUTICASONE PROPIONATE [Concomitant]
  3. PROVENTIL [Concomitant]
  4. MULTIVITAMIN [Concomitant]

REACTIONS (3)
  - Headache [Recovering/Resolving]
  - Hypertension [Unknown]
  - Dysgeusia [Unknown]
